FAERS Safety Report 5736323-3 (Version None)
Quarter: 2008Q2

REPORT INFORMATION
  Report Type: 
  Country: None (occurrence: None)
  Receive Date: 20080513
  Receipt Date: 20080506
  Transmission Date: 20081010
  Serious: Yes (Hospitalization)
  Sender: FDA-Public Use
  Company Number: US-ELI_LILLY_AND_COMPANY-US200805001190

PATIENT
  Sex: Female
  Weight: 89.796 kg

DRUGS (6)
  1. BYETTA [Suspect]
     Indication: TYPE 2 DIABETES MELLITUS
     Dosage: 5 UG, 2/D
     Route: 058
     Dates: start: 20050801, end: 20050901
  2. BYETTA [Suspect]
     Dosage: 10 UG, 2/D
     Route: 058
     Dates: start: 20050901
  3. LANTUS [Concomitant]
     Indication: BLOOD GLUCOSE ABNORMAL
     Dates: end: 20070101
  4. HUMALOG [Concomitant]
     Indication: BLOOD GLUCOSE ABNORMAL
     Dates: end: 20070101
  5. AMARYL [Concomitant]
     Indication: BLOOD GLUCOSE ABNORMAL
     Dates: end: 20070101
  6. METFORMIN HCL [Concomitant]
     Indication: TYPE 2 DIABETES MELLITUS
     Dosage: 500 MG, EACH EVENING
     Route: 048

REACTIONS (9)
  - BRONCHITIS [None]
  - CONTUSION [None]
  - COUGH [None]
  - DECREASED APPETITE [None]
  - HAEMORRHAGE [None]
  - HYPERSENSITIVITY [None]
  - OEDEMA PERIPHERAL [None]
  - PAIN IN EXTREMITY [None]
  - THROMBOSIS [None]
